FAERS Safety Report 8565416-0 (Version None)
Quarter: 2012Q3

REPORT INFORMATION
  Report Type: 
  Country: None (occurrence: None)
  Receive Date: 20120803
  Receipt Date: 20120730
  Transmission Date: 20120928
  Serious: Yes (Hospitalization, Other)
  Sender: FDA-Public Use
  Company Number: GB-PFIZER INC-2012159067

PATIENT
  Age: 62 Year
  Sex: Female
  Weight: 91.3 kg

DRUGS (7)
  1. LIPITOR [Concomitant]
     Dosage: 80 MG, 1X/DAY, AT NIGHT
     Route: 048
     Dates: start: 20120319, end: 20120612
  2. OMEPRAZOLE [Concomitant]
     Dosage: 20 MG, 1X/DAY
     Route: 048
     Dates: start: 20120501
  3. CLOPIDOGREL [Concomitant]
     Dosage: 75 MG, 1X/DAY
     Route: 048
     Dates: start: 20120319
  4. RAMIPRIL [Concomitant]
     Dosage: 10 MG, 1X/DAY
     Route: 048
     Dates: start: 20120502
  5. ATORVASTATIN [Suspect]
     Dosage: 80 MG, 1X/DAY, AT NIGHT
     Route: 048
     Dates: start: 20120612, end: 20120616
  6. BISOPROLOL FUMARATE [Concomitant]
     Dosage: 1.25 MG, 1X/DAY
     Route: 048
     Dates: start: 20120419
  7. AMLODIPINE [Concomitant]
     Dosage: 5 MG, 1X/DAY
     Route: 048
     Dates: start: 20110106

REACTIONS (2)
  - PRODUCT SUBSTITUTION ISSUE [None]
  - BLOOD PRESSURE INCREASED [None]
